FAERS Safety Report 9536182 (Version 1)
Quarter: 2013Q3

REPORT INFORMATION
  Report Type: Report from Study
  Country: CR (occurrence: CR)
  Receive Date: 20130919
  Receipt Date: 20130919
  Transmission Date: 20140515
  Serious: Yes (Hospitalization)
  Sender: FDA-Public Use
  Company Number: CR-ROCHE-1278041

PATIENT
  Age: 96 Year
  Sex: Female

DRUGS (8)
  1. BONVIVA [Suspect]
     Indication: OSTEOPOROSIS
     Route: 048
     Dates: start: 20080807, end: 20130507
  2. AMLODIPINE [Concomitant]
     Indication: HYPERTENSION
  3. HYDROCHLOROTHIAZIDE [Concomitant]
     Indication: HYPERTENSION
  4. GRAVOL [Concomitant]
     Indication: INSOMNIA
  5. GRAVOL [Concomitant]
     Indication: DIZZINESS
  6. FAMOTIDINE [Concomitant]
     Indication: PROPHYLAXIS AGAINST GASTROINTESTINAL ULCER
  7. CLOPIDOGREL [Concomitant]
     Route: 065
     Dates: start: 1997
  8. VENLAFAXINE [Concomitant]
     Indication: IRRITABILITY

REACTIONS (2)
  - Hip fracture [Recovered/Resolved]
  - Hip fracture [Recovered/Resolved]
